FAERS Safety Report 23998771 (Version 1)
Quarter: 2024Q2

REPORT INFORMATION
  Report Type: Spontaneous
  Country: IT (occurrence: IT)
  Receive Date: 20240621
  Receipt Date: 20240621
  Transmission Date: 20240716
  Serious: Yes (Death, Other)
  Sender: FDA-Public Use
  Company Number: IT-MACLEODS PHARMA-MAC2024047747

PATIENT

DRUGS (2)
  1. POTASSIUM CHLORIDE [Suspect]
     Active Substance: POTASSIUM CHLORIDE
     Indication: Product used for unknown indication
     Dosage: TWO EMPTY VIALS OF 10 ML POTASSIUM CHLORIDE
     Route: 042
  2. VALIUM [Suspect]
     Active Substance: DIAZEPAM
     Indication: Mixed anxiety and depressive disorder
     Dosage: EMPTY 10 MG VIAL OF VALIUM (DIAZEPAM)
     Route: 042

REACTIONS (3)
  - Completed suicide [Fatal]
  - Asphyxia [Fatal]
  - Toxicity to various agents [Fatal]
